FAERS Safety Report 7396351-1 (Version None)
Quarter: 2011Q2

REPORT INFORMATION
  Report Type: 
  Country: None (occurrence: None)
  Receive Date: 20110406
  Receipt Date: 20110323
  Transmission Date: 20111010
  Serious: Yes (Hospitalization)
  Sender: FDA-Public Use
  Company Number: KR-JNJFOC-20110311053

PATIENT
  Sex: Male
  Weight: 63 kg

DRUGS (22)
  1. INVEGA [Suspect]
     Indication: SCHIZOPHRENIA
     Route: 048
  2. INVEGA [Suspect]
     Route: 048
  3. SEROQUEL [Concomitant]
     Route: 048
  4. STILNOX [Concomitant]
     Route: 048
  5. ALPRAM [Concomitant]
     Route: 048
  6. INVEGA [Suspect]
     Route: 048
  7. SEROQUEL [Concomitant]
     Indication: SCHIZOPHRENIA
     Route: 048
  8. SEROQUEL [Concomitant]
     Route: 048
  9. LEXAPRO [Concomitant]
     Indication: SCHIZOPHRENIA
     Route: 048
  10. LEXAPRO [Concomitant]
     Route: 048
  11. STILNOX [Concomitant]
     Indication: SCHIZOPHRENIA
     Route: 048
  12. ALPRAM [Concomitant]
     Indication: SCHIZOPHRENIA
     Route: 048
  13. INVEGA [Suspect]
     Route: 048
  14. SEROQUEL [Concomitant]
     Route: 048
  15. INVEGA [Suspect]
     Route: 048
  16. WELLBUTRIN [Concomitant]
     Indication: SCHIZOPHRENIA
     Route: 048
  17. LEXAPRO [Concomitant]
     Route: 048
  18. INVEGA [Suspect]
     Route: 048
  19. BENZTROPINE MESYLATE [Concomitant]
     Indication: SCHIZOPHRENIA
     Route: 048
  20. STILNOX [Concomitant]
     Route: 048
  21. ALPRAM [Concomitant]
     Route: 048
  22. SEROQUEL [Concomitant]
     Route: 048

REACTIONS (2)
  - DEPRESSION [None]
  - SUICIDE ATTEMPT [None]
